FAERS Safety Report 25886214 (Version 2)
Quarter: 2025Q4

REPORT INFORMATION
  Report Type: Spontaneous
  Country: US (occurrence: US)
  Receive Date: 20251006
  Receipt Date: 20251015
  Transmission Date: 20260118
  Serious: No
  Sender: PFIZER
  Company Number: US-PFIZER INC-202500073203

PATIENT
  Age: 14 Year
  Sex: Male

DRUGS (2)
  1. LITFULO [Suspect]
     Active Substance: RITLECITINIB TOSYLATE
     Indication: Alopecia areata
     Dosage: 50 MG, DAILY (LENGTH OF THERAPY: 3 MONTHS)
  2. LITFULO [Suspect]
     Active Substance: RITLECITINIB TOSYLATE
     Indication: Dermatitis atopic

REACTIONS (1)
  - Pruritus [Unknown]
